FAERS Safety Report 7391183-2 (Version None)
Quarter: 2011Q2

REPORT INFORMATION
  Report Type: 
  Country: None (occurrence: None)
  Receive Date: 20110404
  Receipt Date: 20100511
  Transmission Date: 20111010
  Serious: No
  Sender: FDA-Public Use
  Company Number: US-PFIZER INC-2010059301

PATIENT

DRUGS (3)
  1. VANCOMYCIN [Suspect]
     Dosage: UNK
  2. ZOLOFT [Suspect]
     Dosage: UNK
  3. CLEOCIN [Suspect]
     Dosage: UNK

REACTIONS (2)
  - CYST [None]
  - DRUG HYPERSENSITIVITY [None]
